FAERS Safety Report 8161443-6 (Version None)
Quarter: 2012Q1

REPORT INFORMATION
  Report Type: 
  Country: None (occurrence: None)
  Receive Date: 20120224
  Receipt Date: 20120213
  Transmission Date: 20120608
  Serious: Yes (Other)
  Sender: FDA-Public Use
  Company Number: CA-JNJFOC-20120207088

PATIENT
  Sex: Female
  Weight: 44 kg

DRUGS (4)
  1. REMICADE [Suspect]
     Dosage: 4TH DOSE
     Route: 042
     Dates: start: 20120213
  2. REMICADE [Suspect]
     Indication: CROHN'S DISEASE
     Dosage: 200 (UNITS UNSPECIFIED) ONCE EVERY 8 (TIME UNSPECIFIED)
     Route: 042
     Dates: start: 20110711
  3. BENADRYL [Concomitant]
     Route: 065
  4. ALL OTHER THERAPEUTIC PRODUCTS [Concomitant]
     Route: 058

REACTIONS (4)
  - INFUSION RELATED REACTION [None]
  - COUGH [None]
  - DYSPNOEA [None]
  - FLUSHING [None]
